FAERS Safety Report 4303155-2 (Version None)
Quarter: 2004Q1

REPORT INFORMATION
  Report Type: 
  Country: None (occurrence: None)
  Receive Date: 20040126
  Receipt Date: 20030925
  Transmission Date: 20041129
  Serious: No
  Sender: FDA-Public Use
  Company Number: USA030948335

PATIENT
  Age: 35 Year
  Sex: Female
  Weight: 73 kg

DRUGS (4)
  1. STRATTERA [Suspect]
     Indication: ATTENTION DEFICIT/HYPERACTIVITY DISORDER
     Dosage: 40 MG/DAY
     Dates: start: 20030924
  2. LEXAPRO [Concomitant]
  3. XANAX [Concomitant]
  4. WELLBUTRIN (BUPROPION HYDROHCLORIDE) [Concomitant]

REACTIONS (5)
  - CHILLS [None]
  - COLD SWEAT [None]
  - FEELING HOT [None]
  - INSOMNIA [None]
  - VISION BLURRED [None]
